FAERS Safety Report 10751710 (Version 2)
Quarter: 2015Q1

REPORT INFORMATION
  Report Type: Spontaneous
  Country: US (occurrence: US)
  Receive Date: 20150130
  Receipt Date: 20150226
  Transmission Date: 20150721
  Serious: Yes (Hospitalization, Other)
  Sender: FDA-Public Use
  Company Number: US-PFIZER INC-2015032725

PATIENT
  Age: 90 Year
  Sex: Female
  Weight: 55 kg

DRUGS (14)
  1. OMEPRAZOLE. [Concomitant]
     Active Substance: OMEPRAZOLE
     Dosage: 20 MG, 1X/DAY (IN THE PM)
     Route: 048
  2. LEVOTHYROXINE SODIUM. [Concomitant]
     Active Substance: LEVOTHYROXINE SODIUM
     Dosage: 50 ?G, DAILY
     Route: 048
  3. TRAMADOL [Concomitant]
     Active Substance: TRAMADOL
     Dosage: 50 MG, EVERY 6 HOURS NOT TO EXCEED 4 TABLETS
     Route: 048
  4. VITAMIN D 2000 [Concomitant]
     Dosage: UNK
     Route: 048
  5. LYRICA [Suspect]
     Active Substance: PREGABALIN
     Indication: FIBROMYALGIA
     Dosage: 150 MG, DAILY
     Route: 048
  6. LYRICA [Suspect]
     Active Substance: PREGABALIN
     Indication: ARTHRITIS
     Dosage: 75 MG, DAILY
     Route: 048
  7. POLYETHYLENE GLYCOL [Concomitant]
     Active Substance: POLYETHYLENE GLYCOLS
     Dosage: 17 G, 1X/DAY
     Route: 048
  8. FENTANYL. [Concomitant]
     Active Substance: FENTANYL
     Dosage: 25MCG 50MCG EVERY 3 DAYS
     Route: 062
  9. LORAZEPAM. [Concomitant]
     Active Substance: LORAZEPAM
     Dosage: 0.5 MG, DAILY
     Route: 048
  10. KLOR-CON [Concomitant]
     Active Substance: POTASSIUM CHLORIDE
     Dosage: 10 MEQ, DAILY
     Route: 048
  11. ACETAMINOPHEN. [Concomitant]
     Active Substance: ACETAMINOPHEN
     Dosage: 200 MG, UNK
  12. LYRICA [Suspect]
     Active Substance: PREGABALIN
     Indication: NEURALGIA
  13. IBANDRONATE SODIUM. [Concomitant]
     Active Substance: IBANDRONATE SODIUM
     Dosage: 150 MG, MONTHLY
     Route: 048
  14. LYRICA [Suspect]
     Active Substance: PREGABALIN
     Indication: NEUROPATHY PERIPHERAL
     Dosage: 150 MG, DAILY
     Route: 048

REACTIONS (10)
  - Spinal compression fracture [Unknown]
  - Lumbar vertebral fracture [Unknown]
  - Traumatic lung injury [Not Recovered/Not Resolved]
  - Somnolence [Unknown]
  - Pneumonia [Recovered/Resolved with Sequelae]
  - Back disorder [Unknown]
  - Chronic obstructive pulmonary disease [Not Recovered/Not Resolved]
  - Fall [Unknown]
  - Joint dislocation [Not Recovered/Not Resolved]
  - Muscle spasms [Not Recovered/Not Resolved]

NARRATIVE: CASE EVENT DATE: 2010
